FAERS Safety Report 11453282 (Version 3)
Quarter: 2015Q3

REPORT INFORMATION
  Report Type: Spontaneous
  Country: US (occurrence: US)
  Receive Date: 20150903
  Receipt Date: 20150921
  Transmission Date: 20151125
  Serious: No
  Sender: FDA-Public Use
  Company Number: US-PFIZER INC-2015290017

PATIENT
  Age: 83 Year
  Sex: Female
  Weight: 88 kg

DRUGS (8)
  1. MYBETRIG [Concomitant]
     Indication: URINARY INCONTINENCE
     Dosage: 50 MG, DAILY
     Route: 048
  2. ONE A DAY [Concomitant]
     Dosage: UNK, DAILY
  3. TRIMETHOPRIM. [Concomitant]
     Active Substance: TRIMETHOPRIM
     Indication: URINARY TRACT INFECTION
     Dosage: 100 MG, 1X/DAY
  4. CELEBREX [Suspect]
     Active Substance: CELECOXIB
     Indication: ARTHRITIS
     Dosage: 200 MG, 1X/DAY
     Route: 048
     Dates: start: 2000
  5. CELEBREX [Suspect]
     Active Substance: CELECOXIB
     Indication: PAIN IN EXTREMITY
     Dosage: 200 MG, 1X/DAY
     Dates: start: 2000
  6. BIOTIN [Concomitant]
     Active Substance: BIOTIN
     Dosage: 1000 MEQ, DAILY
  7. VITAMIN D [Concomitant]
     Active Substance: CHOLECALCIFEROL
     Dosage: UNK
  8. ASPIRIN. [Concomitant]
     Active Substance: ASPIRIN
     Indication: CARDIAC DISORDER
     Dosage: 81 MG, DAILY
     Route: 048

REACTIONS (1)
  - Weight decreased [Unknown]
